FAERS Safety Report 4675902-1 (Version None)
Quarter: 2005Q2

REPORT INFORMATION
  Report Type: 
  Country: None (occurrence: None)
  Receive Date: 20050527
  Receipt Date: 20050519
  Transmission Date: 20051028
  Serious: Yes (Hospitalization)
  Sender: FDA-Public Use
  Company Number: US-JNJFOC-20050505949

PATIENT
  Sex: Female
  Weight: 67.59 kg

DRUGS (13)
  1. INFLIXIMAB [Suspect]
     Indication: RHEUMATOID ARTHRITIS
     Route: 042
  2. FOSAMAX [Concomitant]
  3. LIPITOR [Concomitant]
  4. METHOTREXATE [Concomitant]
  5. FOLIC ACID [Concomitant]
  6. TOPROL-XL [Concomitant]
  7. NORVASC [Concomitant]
  8. COUMADIN [Concomitant]
  9. PREDNISONE [Concomitant]
  10. ASPIRIN [Concomitant]
  11. OS-CAL D [Concomitant]
  12. OS-CAL D [Concomitant]
  13. DULCOLAX [Concomitant]

REACTIONS (6)
  - CARDIAC FAILURE [None]
  - CARDIAC FAILURE CONGESTIVE [None]
  - HYPERTENSIVE HEART DISEASE [None]
  - NITRITE URINE PRESENT [None]
  - PLEURAL EFFUSION [None]
  - WHITE BLOOD CELLS URINE POSITIVE [None]
